FAERS Safety Report 5164717-6 (Version None)
Quarter: 2006Q4

REPORT INFORMATION
  Report Type: 
  Country: None (occurrence: None)
  Receive Date: 20061124
  Receipt Date: 20061116
  Transmission Date: 20070319
  Serious: Yes (Death)
  Sender: FDA-Public Use
  Company Number: 8020261

PATIENT
  Age: 36 Year
  Sex: Male

DRUGS (3)
  1. KEPPRA [Suspect]
     Indication: GRAND MAL CONVULSION
     Dosage: 3000 MG /D PO
     Route: 048
     Dates: start: 20050101, end: 20061017
  2. KEPPRA [Suspect]
     Indication: GRAND MAL CONVULSION
     Dosage: 4000 MG /D PO
     Route: 048
     Dates: start: 20061017, end: 20061030
  3. RELPAX [Concomitant]

REACTIONS (6)
  - CARPAL TUNNEL SYNDROME [None]
  - DYSKINESIA [None]
  - IRRITABILITY [None]
  - MIGRAINE [None]
  - SLEEP DISORDER [None]
  - THOUGHT BLOCKING [None]
